FAERS Safety Report 5823835-7 (Version None)
Quarter: 2008Q3

REPORT INFORMATION
  Report Type: 
  Country: None (occurrence: None)
  Receive Date: 20080725
  Receipt Date: 20080717
  Transmission Date: 20090109
  Serious: Yes (Hospitalization)
  Sender: FDA-Public Use
  Company Number: IT-ABBOTT-08P-083-0459874-00

PATIENT
  Sex: Male

DRUGS (2)
  1. HUMIRA [Suspect]
     Indication: CROHN'S DISEASE
     Dosage: 80MG
     Route: 058
     Dates: start: 20080612
  2. PREDNISONE TAB [Concomitant]
     Indication: DRUG USE FOR UNKNOWN INDICATION
     Route: 048
     Dates: start: 20080608

REACTIONS (5)
  - ASTHENIA [None]
  - INFLAMMATION [None]
  - PROSTATIC SPECIFIC ANTIGEN INCREASED [None]
  - PROSTATITIS [None]
  - UROSEPSIS [None]
